FAERS Safety Report 5820805-X (Version None)
Quarter: 2008Q3

REPORT INFORMATION
  Report Type: 
  Country: None (occurrence: None)
  Receive Date: 20080718
  Receipt Date: 20080718
  Transmission Date: 20090109
  Serious: Yes (Hospitalization)
  Sender: FDA-Public Use
  Company Number: None

PATIENT
  Age: 72 Year
  Sex: Male
  Weight: 52 kg

DRUGS (9)
  1. FLUDARABINE PHOSPHATE [Suspect]
     Indication: CHRONIC LYMPHOCYTIC LEUKAEMIA
     Dosage: 25MG/M2=39 MG  DAY 1-3 Q 28 DAYS  IV DRIP
     Route: 041
     Dates: start: 20080513, end: 20080611
  2. RITUXIMAB [Suspect]
     Indication: CHRONIC LYMPHOCYTIC LEUKAEMIA
     Dosage: 375MG/M2=585 MG D1 Q28 DAYS IV DRIP
     Route: 041
     Dates: start: 20080513, end: 20080609
  3. LIPITOR [Concomitant]
  4. PENTAMIDINE [Concomitant]
  5. IMODIUM [Concomitant]
  6. NEURONTIN [Concomitant]
  7. METOPROLOL TARTRATE [Concomitant]
  8. COMBIVENT [Concomitant]
  9. AMLODIPINE-ATORVASTATINE [Concomitant]

REACTIONS (7)
  - AZOTAEMIA [None]
  - DEHYDRATION [None]
  - DIARRHOEA [None]
  - NAUSEA [None]
  - PNEUMONIA [None]
  - SINUS TACHYCARDIA [None]
  - VOMITING [None]
